FAERS Safety Report 7670005-6 (Version None)
Quarter: 2011Q3

REPORT INFORMATION
  Report Type: 
  Country: None (occurrence: None)
  Receive Date: 20110808
  Receipt Date: 20110702
  Transmission Date: 20111222
  Serious: Yes (Other)
  Sender: FDA-Public Use
  Company Number: AO-ASTRAZENECA-2011SE40211

PATIENT
  Sex: Female

DRUGS (1)
  1. MEROPENEM [Suspect]
     Indication: ENDOCARDITIS
     Route: 042
     Dates: start: 20110601

REACTIONS (1)
  - POLYARTERITIS NODOSA [None]
